FAERS Safety Report 5329941-8 (Version None)
Quarter: 2007Q2

REPORT INFORMATION
  Report Type: 
  Country: None (occurrence: None)
  Receive Date: 20070517
  Receipt Date: 20070517
  Transmission Date: 20071010
  Serious: Yes (Other)
  Sender: FDA-Public Use
  Company Number: None

PATIENT
  Sex: Male
  Weight: 23.587 kg

DRUGS (2)
  1. NIX [Suspect]
     Indication: LICE INFESTATION
     Dates: start: 20070515, end: 20070515
  2. NIX [Suspect]
     Indication: PROPHYLAXIS
     Dates: start: 20070515, end: 20070515

REACTIONS (3)
  - HYPERSENSITIVITY [None]
  - LOCAL SWELLING [None]
  - LYMPHADENOPATHY [None]
